FAERS Safety Report 19707507 (Version 3)
Quarter: 2021Q3

REPORT INFORMATION
  Report Type: Spontaneous
  Country: GB (occurrence: GB)
  Receive Date: 20210817
  Receipt Date: 20210930
  Transmission Date: 20211014
  Serious: Yes (Hospitalization)
  Sender: FDA-Public Use
  Company Number: GB-VERTEX PHARMACEUTICALS-2021-012330

PATIENT
  Sex: Male

DRUGS (3)
  1. TOBI [Concomitant]
     Active Substance: TOBRAMYCIN
  2. KALYDECO [Suspect]
     Active Substance: IVACAFTOR
     Indication: CYSTIC FIBROSIS
     Dosage: UNK
     Route: 048
     Dates: start: 20201106
  3. KAFTRIO [Suspect]
     Active Substance: ELEXACAFTOR\IVACAFTOR\TEZACAFTOR
     Indication: CYSTIC FIBROSIS
     Dosage: 75MG IVA/50MG TEZA/100MG ELEXA; DAILY
     Route: 048
     Dates: start: 20201106

REACTIONS (3)
  - Sputum increased [Unknown]
  - Cough [Unknown]
  - Enteral nutrition [Unknown]

NARRATIVE: CASE EVENT DATE: 2021
